FAERS Safety Report 9780876 (Version 1)
Quarter: 2013Q4

REPORT INFORMATION
  Report Type: Spontaneous
  Country: GB (occurrence: GB)
  Receive Date: 20131224
  Receipt Date: 20131224
  Transmission Date: 20140711
  Serious: Yes (Hospitalization, Other)
  Sender: FDA-Public Use
  Company Number: GB-009507513-1312GBR010278

PATIENT
  Age: 74 Year
  Sex: Female
  Weight: 80 kg

DRUGS (6)
  1. SITAGLIPTIN PHOSPHATE [Suspect]
     Dosage: 100 MG, UNK
     Route: 048
     Dates: start: 20130103, end: 20131209
  2. ASPIRIN [Concomitant]
  3. FUROSEMIDE [Concomitant]
  4. GLICLAZIDE [Concomitant]
  5. METFORMIN [Concomitant]
  6. SIMVASTATIN [Concomitant]

REACTIONS (1)
  - Tubulointerstitial nephritis [Recovered/Resolved with Sequelae]
